FAERS Safety Report 24595034 (Version 1)
Quarter: 2024Q4

REPORT INFORMATION
  Report Type: Spontaneous
  Country: JP (occurrence: JP)
  Receive Date: 20241108
  Receipt Date: 20241108
  Transmission Date: 20250115
  Serious: Yes (Other)
  Sender: EISAI
  Company Number: JP-Eisai-202410007_LEN-EC_P_1

PATIENT
  Sex: Female

DRUGS (12)
  1. LENVATINIB [Suspect]
     Active Substance: LENVATINIB
     Indication: Endometrial cancer
     Dosage: DOSE AND FREQUENCY UNKNOWN
     Route: 048
  2. LENVATINIB [Suspect]
     Active Substance: LENVATINIB
     Dosage: DOSE AND FREQUENCY UNKNOWN (DOSE WAS REDUCED BY 1 LEVEL)
     Route: 048
  3. LENVATINIB [Suspect]
     Active Substance: LENVATINIB
     Dosage: DOSE AND FREQUENCY UNKNOWN (DOSE WAS REDUCED BY 1 LEVEL)
     Route: 048
  4. LENVATINIB [Suspect]
     Active Substance: LENVATINIB
     Dosage: DOSE AND FREQUENCY UNKNOWN (DOSE WAS REDUCED BY 1 LEVEL)
     Route: 048
  5. KEYTRUDA [Concomitant]
     Active Substance: PEMBROLIZUMAB
     Indication: Endometrial cancer
     Dosage: DOSE AND FREQUENCY UNKNOWN
     Route: 041
  6. RUPAFIN [Concomitant]
     Active Substance: RUPATADINE FUMARATE
     Dosage: DOSE UNKNOWN
     Route: 065
  7. DEXTROMETHORPHAN HYDROBROMIDE [Concomitant]
     Active Substance: DEXTROMETHORPHAN HYDROBROMIDE
     Dosage: DOSE UNKNOWN
     Route: 065
  8. BECLOMETHASONE DIPROPIONATE [Concomitant]
     Active Substance: BECLOMETHASONE DIPROPIONATE
     Dosage: DOSE UNKNOWN
     Route: 065
  9. SODIUM GUALENATE MONOHYDRATE [Concomitant]
     Active Substance: SODIUM GUALENATE MONOHYDRATE
     Dosage: DOSE UNKNOWN
     Route: 065
  10. BETAMETHASONE SODIUM PHOSPHATE [Concomitant]
     Active Substance: BETAMETHASONE SODIUM PHOSPHATE
     Dosage: DOSE UNKNOWN
     Route: 065
  11. DEXAN VG [Concomitant]
     Dosage: DOSE UNKNOWN
     Route: 065
  12. MYSER [Concomitant]
     Dosage: DOSE UNKNOWN
     Route: 065

REACTIONS (15)
  - Interstitial lung disease [Unknown]
  - Neutropenia [Unknown]
  - Anaemia [Unknown]
  - Platelet count decreased [Unknown]
  - Hypertension [Unknown]
  - Proteinuria [Unknown]
  - Hypothyroidism [Unknown]
  - Malaise [Unknown]
  - Decreased appetite [Unknown]
  - Taste disorder [Unknown]
  - Stomatitis [Unknown]
  - Rash [Unknown]
  - Pruritus [Unknown]
  - Palmar-plantar erythrodysaesthesia syndrome [Unknown]
  - Dysphonia [Unknown]
